FAERS Safety Report 22212632 (Version 8)
Quarter: 2024Q2

REPORT INFORMATION
  Report Type: Spontaneous
  Country: US (occurrence: US)
  Receive Date: 20230414
  Receipt Date: 20240610
  Transmission Date: 20240715
  Serious: No
  Sender: FDA-Public Use
  Company Number: US-PFIZER INC-202101709841

PATIENT
  Age: 72 Year
  Sex: Female
  Weight: 49.887 kg

DRUGS (1)
  1. PREMPRO [Suspect]
     Active Substance: ESTROGENS, CONJUGATED\MEDROXYPROGESTERONE ACETATE
     Dosage: QUANTITY FOR 90 DAYS: TAB 28 X 3 MONTH

REACTIONS (3)
  - Menopause [Unknown]
  - Palpitations [Recovered/Resolved]
  - Product prescribing issue [Unknown]
